FAERS Safety Report 20769604 (Version 1)
Quarter: 2022Q2

REPORT INFORMATION
  Report Type: Spontaneous
  Country: US (occurrence: None)
  Receive Date: 20220429
  Receipt Date: 20220429
  Transmission Date: 20220721
  Serious: No
  Sender: FDA-Public Use
  Company Number: None

PATIENT
  Age: 70 Year
  Sex: Female
  Weight: 83.28 kg

DRUGS (7)
  1. VERZENIO [Suspect]
     Active Substance: ABEMACICLIB
     Indication: Breast cancer
     Dosage: FREQUENCY : TWICE A DAY;?
     Route: 048
     Dates: start: 20220413
  2. BENZAEPRIL [Concomitant]
  3. DECADRON [Concomitant]
     Active Substance: DEXAMETHASONE
  4. ACETAMINOPHEN\HYDROCODONE [Concomitant]
     Active Substance: ACETAMINOPHEN\HYDROCODONE
  5. LETROZOLE [Concomitant]
     Active Substance: LETROZOLE
  6. LEVAQUIN [Concomitant]
     Active Substance: LEVOFLOXACIN
  7. PROTONIX [Concomitant]
     Active Substance: PANTOPRAZOLE SODIUM

REACTIONS (2)
  - Haematochezia [None]
  - Frequent bowel movements [None]
